FAERS Safety Report 7753787-4 (Version None)
Quarter: 2011Q3

REPORT INFORMATION
  Report Type: 
  Country: None (occurrence: None)
  Receive Date: 20110915
  Receipt Date: 20110908
  Transmission Date: 20111222
  Serious: Yes (Other)
  Sender: FDA-Public Use
  Company Number: JP-EISAI INC-E3810-04930-SPO-JP

PATIENT
  Age: 75 Year
  Sex: Female

DRUGS (4)
  1. DEPAS [Concomitant]
     Route: 048
  2. RABEPRAZOLE SODIUM [Suspect]
     Indication: GASTRIC ULCER
     Route: 048
     Dates: start: 20110727, end: 20110810
  3. BIOFERMIN [Concomitant]
  4. CALBLOCK [Concomitant]
     Indication: HYPERTENSION
     Route: 048

REACTIONS (1)
  - NEPHROTIC SYNDROME [None]
